FAERS Safety Report 10224853 (Version 1)
Quarter: 2014Q2

REPORT INFORMATION
  Report Type: Spontaneous
  Country: US (occurrence: US)
  Receive Date: 20140609
  Receipt Date: 20140609
  Transmission Date: 20141212
  Serious: Yes (Hospitalization)
  Sender: FDA-Public Use
  Company Number: US-GLAXOSMITHKLINE-A1076126A

PATIENT
  Age: 53 Year
  Sex: Male
  Weight: 97.7 kg

DRUGS (2)
  1. ALBUTEROL [Suspect]
     Indication: PRODUCT USED FOR UNKNOWN INDICATION
     Route: 065
  2. PREDNISONE [Suspect]
     Indication: PRODUCT USED FOR UNKNOWN INDICATION
     Route: 065

REACTIONS (10)
  - Syncope [Unknown]
  - Cough [Unknown]
  - Dizziness [Unknown]
  - Facial bones fracture [Unknown]
  - Dyspnoea exertional [Unknown]
  - Chest discomfort [Unknown]
  - Wheezing [Unknown]
  - Nausea [Unknown]
  - Dyspepsia [Unknown]
  - Drug administration error [Unknown]
